FAERS Safety Report 18855950 (Version 1)
Quarter: 2021Q1

REPORT INFORMATION
  Report Type: Spontaneous
  Country: CN (occurrence: CN)
  Receive Date: 20210206
  Receipt Date: 20210206
  Transmission Date: 20210420
  Serious: Yes (Other)
  Sender: FDA-Public Use
  Company Number: CN-LUPIN PHARMACEUTICALS INC.-2021-01157

PATIENT
  Age: 24 Year
  Sex: Female

DRUGS (29)
  1. METHYLPREDNISOLONE. [Suspect]
     Active Substance: METHYLPREDNISOLONE
     Dosage: 300 MILLIGRAM (AT 24 PLUS  3 WEEKS OF GESTATION ON THE SECOND DAY)
     Route: 065
  2. AZATHIOPRINE. [Suspect]
     Active Substance: AZATHIOPRINE
     Dosage: 50 MILLIGRAM, QD (MAINTAINED TILL LEAVING HOSPITAL)
     Route: 065
  3. MYCOPHENOLATE MOFETIL. [Suspect]
     Active Substance: MYCOPHENOLATE MOFETIL
     Indication: IMMUNOSUPPRESSANT DRUG THERAPY
  4. METHYLPREDNISOLONE. [Suspect]
     Active Substance: METHYLPREDNISOLONE
     Indication: IMMUNOSUPPRESSANT DRUG THERAPY
     Dosage: 40 MILLIGRAM, QD (DURING 23 PLUS 4 AND 24+2 WEEKS OF GESTATION)
     Route: 065
  5. METHYLPREDNISOLONE. [Suspect]
     Active Substance: METHYLPREDNISOLONE
     Dosage: 80 MILLIGRAM, QD (ON THE DAY OF CAESAREAN SECTION)
     Route: 065
  6. METHYLPREDNISOLONE. [Suspect]
     Active Substance: METHYLPREDNISOLONE
     Dosage: 16 MILLIGRAM, QD (AS A MAINTENANCE IMMUNOSUPPRESSION)
     Route: 065
  7. METHYLPREDNISOLONE. [Suspect]
     Active Substance: METHYLPREDNISOLONE
     Dosage: 4 MILLIGRAM, QD
     Route: 065
  8. AZATHIOPRINE. [Suspect]
     Active Substance: AZATHIOPRINE
     Dosage: 50 MILLIGRAM, QD
     Route: 065
  9. RITUXIMAB. [Suspect]
     Active Substance: RITUXIMAB
     Indication: SYSTEMIC LUPUS ERYTHEMATOSUS
     Dosage: 100 MILLIGRAM (TWO TIMES/WEEK)
     Route: 065
  10. METHYLPREDNISOLONE. [Suspect]
     Active Substance: METHYLPREDNISOLONE
     Dosage: UNK (1 WEEK AFTER THE OPERATION (40 PLUS 30 MG ONCE DAILY))
     Route: 065
  11. HYDROXYCHLOROQUINE [Suspect]
     Active Substance: HYDROXYCHLOROQUINE
     Indication: SYSTEMIC LUPUS ERYTHEMATOSUS
     Dosage: 200 MILLIGRAM, QD
     Route: 065
  12. HYDROXYCHLOROQUINE [Suspect]
     Active Substance: HYDROXYCHLOROQUINE
     Indication: IMMUNOSUPPRESSANT DRUG THERAPY
     Dosage: 0.2 GRAM, QD (MAINTAINED TILL LEAVING HOSPITAL)
     Route: 065
  13. LABETALOL [Suspect]
     Active Substance: LABETALOL\LABETALOL HYDROCHLORIDE
     Indication: BLOOD PRESSURE INCREASED
     Dosage: 100 MILLIGRAM, BID
     Route: 065
  14. IMMUNE GLOBULIN (IMMUNOGLOBULINS NOS) [Suspect]
     Active Substance: IMMUNE GLOBULIN NOS
     Indication: IMMUNOSUPPRESSANT DRUG THERAPY
     Dosage: 20 GRAM, QD (ON THE DAY OF CAESAREAN SECTION)
     Route: 042
  15. IMMUNE GLOBULIN (IMMUNOGLOBULINS NOS) [Suspect]
     Active Substance: IMMUNE GLOBULIN NOS
     Indication: SYSTEMIC LUPUS ERYTHEMATOSUS
     Dosage: 20 GRAM, QD (AT 22+5 WEEKS OF GESTATION)
     Route: 042
  16. RITUXIMAB. [Suspect]
     Active Substance: RITUXIMAB
     Indication: IMMUNOSUPPRESSANT DRUG THERAPY
  17. METHYLPREDNISOLONE. [Suspect]
     Active Substance: METHYLPREDNISOLONE
     Dosage: UNK (1 WEEK AFTER THE OPERATION (40 PLUS 20 MG ONCE DAILY))
     Route: 065
  18. MYCOPHENOLATE MOFETIL. [Suspect]
     Active Substance: MYCOPHENOLATE MOFETIL
     Indication: SYSTEMIC LUPUS ERYTHEMATOSUS
     Dosage: 0.5 GRAM, QD (AS A MAINTENANCE IMMUNOSUPPRESSION)
     Route: 065
  19. TACROLIMUS. [Suspect]
     Active Substance: TACROLIMUS
     Dosage: 0.25 MILLIGRAM (FOR 2 DAYS AND THEN DISCONTINUED)
     Route: 065
  20. METHYLPREDNISOLONE. [Suspect]
     Active Substance: METHYLPREDNISOLONE
     Indication: SYSTEMIC LUPUS ERYTHEMATOSUS
     Dosage: 500 MILLIGRAM, QD (AT 22 PLUS  5 WEEKS OF GESTATION)
     Route: 065
  21. METHYLPREDNISOLONE. [Suspect]
     Active Substance: METHYLPREDNISOLONE
     Dosage: 500 MILLIGRAM (AT 24 PLUS  3 WEEKS OF GESTATION ON THE FIRST DAY)
     Route: 065
  22. METHYLPREDNISOLONE. [Suspect]
     Active Substance: METHYLPREDNISOLONE
     Dosage: 40 MILLIGRAM, QD (ON ADMISSION)
     Route: 065
  23. METHYLPREDNISOLONE. [Suspect]
     Active Substance: METHYLPREDNISOLONE
     Dosage: 40 MILLIGRAM, QD
     Route: 048
  24. TACROLIMUS. [Suspect]
     Active Substance: TACROLIMUS
     Indication: SYSTEMIC LUPUS ERYTHEMATOSUS
     Dosage: 2 MILLIGRAM (AS A MAINTENANCE IMMUNOSUPPRESSION)
     Route: 065
  25. TACROLIMUS. [Suspect]
     Active Substance: TACROLIMUS
     Indication: IMMUNOSUPPRESSANT DRUG THERAPY
     Dosage: 0.5 MILLIGRAM (ON THE FIRST DAY)
     Route: 065
  26. CYCLOPHOSPHAMIDE. [Suspect]
     Active Substance: CYCLOPHOSPHAMIDE
     Indication: SYSTEMIC LUPUS ERYTHEMATOSUS
     Dosage: 200 MILLIGRAM (SEVEN TIMES)
     Route: 065
  27. CYCLOPHOSPHAMIDE. [Suspect]
     Active Substance: CYCLOPHOSPHAMIDE
     Indication: IMMUNOSUPPRESSANT DRUG THERAPY
  28. AZATHIOPRINE. [Suspect]
     Active Substance: AZATHIOPRINE
     Indication: SYSTEMIC LUPUS ERYTHEMATOSUS
     Dosage: 75 MILLIGRAM, QD (DURING 23+4 AND 24+2 WEEKS OF GESTATION)
     Route: 065
  29. AZATHIOPRINE. [Suspect]
     Active Substance: AZATHIOPRINE
     Indication: IMMUNOSUPPRESSANT DRUG THERAPY
     Dosage: 75 MILLIGRAM, QD (DURING 24+ TO 28 WEEKS OF GESTATION)
     Route: 065

REACTIONS (3)
  - Premature delivery [Unknown]
  - Off label use [Unknown]
  - Exposure during pregnancy [Unknown]
